FAERS Safety Report 7285934-5 (Version None)
Quarter: 2011Q1

REPORT INFORMATION
  Report Type: 
  Country: None (occurrence: None)
  Receive Date: 20110210
  Receipt Date: 20110131
  Transmission Date: 20110831
  Serious: Yes (Hospitalization)
  Sender: FDA-Public Use
  Company Number: JP-MERCK-1011USA01769

PATIENT
  Age: 51 Year
  Sex: Female

DRUGS (4)
  1. ZETIA [Suspect]
     Indication: DYSLIPIDAEMIA
     Route: 048
     Dates: start: 20101002, end: 20101122
  2. BOFU-TSUSHO-SAN [Suspect]
     Route: 048
  3. SEDIEL [Suspect]
     Route: 048
  4. CALBLOCK [Suspect]
     Route: 048

REACTIONS (1)
  - LIVER DISORDER [None]
